FAERS Safety Report 7768438-2 (Version None)
Quarter: 2011Q3

REPORT INFORMATION
  Report Type: 
  Country: None (occurrence: None)
  Receive Date: 20110922
  Receipt Date: 20110419
  Transmission Date: 20111222
  Serious: No
  Sender: FDA-Public Use
  Company Number: US-ASTRAZENECA-2011SE22981

PATIENT
  Age: 32 Year
  Sex: Male
  Weight: 77.6 kg

DRUGS (3)
  1. FINASTERIDE [Concomitant]
     Indication: ALOPECIA
  2. SEROQUEL XR [Suspect]
     Indication: BIPOLAR DISORDER
     Route: 048
     Dates: start: 20110301
  3. LITHIUM CARBONATE [Concomitant]

REACTIONS (9)
  - HOT FLUSH [None]
  - CHILLS [None]
  - THERAPEUTIC RESPONSE UNEXPECTED [None]
  - INCORRECT DOSE ADMINISTERED [None]
  - INSOMNIA [None]
  - NAUSEA [None]
  - VISION BLURRED [None]
  - DRUG DOSE OMISSION [None]
  - BRADYPHRENIA [None]
